FAERS Safety Report 12664644 (Version 3)
Quarter: 2017Q2

REPORT INFORMATION
  Report Type: Report from Study
  Country: ES (occurrence: ES)
  Receive Date: 20160818
  Receipt Date: 20170526
  Transmission Date: 20170830
  Serious: Yes (Hospitalization)
  Sender: FDA-Public Use
  Company Number: PHHO2016ES011942

PATIENT
  Age: 57 Year
  Sex: Male
  Weight: 101 kg

DRUGS (6)
  1. AIN457 [Suspect]
     Active Substance: SECUKINUMAB
     Indication: PSORIASIS
     Dosage: 300 MG/4 WEEKS
     Route: 058
     Dates: start: 20160519
  2. CALCIO VIT D3 [Concomitant]
     Indication: PRODUCT USED FOR UNKNOWN INDICATION
     Dosage: 0-1-0
     Route: 065
     Dates: start: 2010
  3. AMERIDE [Concomitant]
     Indication: THROMBOSIS
     Dosage: 1 DF (3/50), QD
     Route: 065
     Dates: start: 20060822
  4. HIDROFEROL [Concomitant]
     Active Substance: CALCIFEDIOL
     Indication: PRODUCT USED FOR UNKNOWN INDICATION
     Dosage: 0.266 (1 AMP/WEEK)
     Route: 065
     Dates: start: 20160226
  5. SINTROM [Concomitant]
     Active Substance: ACENOCOUMAROL
     Indication: THROMBOSIS
     Dosage: AS INDICATED BY HAEMATOLOGIST
     Route: 065
     Dates: start: 1994
  6. XERISTAR [Concomitant]
     Active Substance: DULOXETINE HYDROCHLORIDE
     Indication: ANXIETY
     Dosage: 1 DF (60), QD
     Route: 065
     Dates: start: 20121116

REACTIONS (1)
  - Cellulitis [Recovered/Resolved]

NARRATIVE: CASE EVENT DATE: 20160721
